FAERS Safety Report 7731839-2 (Version None)
Quarter: 2011Q3

REPORT INFORMATION
  Report Type: 
  Country: None (occurrence: None)
  Receive Date: 20110906
  Receipt Date: 20110711
  Transmission Date: 20111222
  Serious: No
  Sender: FDA-Public Use
  Company Number: US-AMGEN-USASP2011035045

PATIENT
  Age: 97 Year
  Sex: Female

DRUGS (7)
  1. VITAMIN D [Concomitant]
     Dosage: UNK
  2. VITAMIN B [Concomitant]
     Dosage: UNK
  3. PROLIA [Suspect]
     Indication: OSTEOPOROSIS POSTMENOPAUSAL
     Dosage: 60 MG, Q6MO
     Dates: start: 20110628
  4. DIOVAN [Concomitant]
     Dosage: UNK
  5. TYLENOL (CAPLET) [Concomitant]
     Dosage: UNK
  6. CALCIUM CARBONATE [Concomitant]
     Dosage: UNK
  7. ASPIRIN [Concomitant]
     Dosage: UNK

REACTIONS (6)
  - FEELING ABNORMAL [None]
  - RASH [None]
  - ERYTHEMA [None]
  - PRURITUS GENERALISED [None]
  - SWELLING [None]
  - BLISTER [None]
